FAERS Safety Report 7984184-4 (Version None)
Quarter: 2011Q4

REPORT INFORMATION
  Report Type: 
  Country: None (occurrence: None)
  Receive Date: 20111214
  Receipt Date: 20111130
  Transmission Date: 20120403
  Serious: Yes (Hospitalization)
  Sender: FDA-Public Use
  Company Number: DEP_00535_2011

PATIENT
  Age: 76 Year
  Sex: Female

DRUGS (4)
  1. GLYBURIDE [Concomitant]
  2. OXYCODONE AND ACETAMINOPHEN [Concomitant]
  3. GABAPENTIN [Suspect]
     Indication: DIABETIC NEUROPATHY
     Dosage: SEE IMAGE
  4. ZOLPIDEM [Concomitant]

REACTIONS (8)
  - PAIN IN EXTREMITY [None]
  - ANXIETY [None]
  - BLOOD GLUCOSE INCREASED [None]
  - DRUG WITHDRAWAL SYNDROME [None]
  - AGITATION [None]
  - CONFUSIONAL STATE [None]
  - RESTLESS LEGS SYNDROME [None]
  - AKATHISIA [None]
